FAERS Safety Report 9758383 (Version 2)
Quarter: 2014Q1

REPORT INFORMATION
  Report Type: Spontaneous
  Country: US (occurrence: US)
  Receive Date: 20131216
  Receipt Date: 20140129
  Transmission Date: 20141002
  Serious: Yes (Hospitalization, Other)
  Sender: FDA-Public Use
  Company Number: US-MERCK-1312USA005469

PATIENT
  Age: 49 Year
  Sex: Male
  Weight: 137 kg

DRUGS (3)
  1. JANUVIA [Suspect]
     Indication: TYPE 2 DIABETES MELLITUS
     Dosage: 100 MG, DAILY
     Route: 048
     Dates: start: 20131113, end: 20131122
  2. JANUVIA [Suspect]
     Dosage: UNK
     Route: 048
     Dates: start: 20131124
  3. METFORMIN [Suspect]
     Indication: DIABETES MELLITUS
     Dosage: 500 MG, BID
     Route: 048
     Dates: start: 20131113

REACTIONS (6)
  - Pancreatitis acute [Recovered/Resolved]
  - Lipase increased [Unknown]
  - White blood cell count increased [Unknown]
  - Abdominal pain upper [Recovered/Resolved]
  - Nausea [Recovered/Resolved]
  - Vomiting [Recovered/Resolved]
